FAERS Safety Report 9828490 (Version 2)
Quarter: 2014Q1

REPORT INFORMATION
  Report Type: Spontaneous
  Country: US (occurrence: US)
  Receive Date: 20140117
  Receipt Date: 20140124
  Transmission Date: 20141002
  Serious: No
  Sender: FDA-Public Use
  Company Number: US-009507513-1401USA005338

PATIENT
  Age: 18 Year
  Sex: Female
  Weight: 68.93 kg

DRUGS (2)
  1. NEXPLANON [Suspect]
     Indication: CONTRACEPTION
     Dosage: 1 ROD FOR 3 YEARS
     Route: 059
     Dates: start: 201211
  2. CONCERTA [Concomitant]

REACTIONS (2)
  - Menorrhagia [Unknown]
  - Weight increased [Unknown]
